FAERS Safety Report 25071648 (Version 1)
Quarter: 2025Q1

REPORT INFORMATION
  Report Type: Report from Study
  Country: PT (occurrence: PT)
  Receive Date: 20250313
  Receipt Date: 20250313
  Transmission Date: 20250409
  Serious: Yes (Other)
  Sender: ABBVIE
  Company Number: None

PATIENT
  Age: 23 Year
  Sex: Male

DRUGS (2)
  1. RINVOQ [Suspect]
     Active Substance: UPADACITINIB
     Indication: Colitis ulcerative
     Dosage: 1XDAY?FORM STRENGTH: 45 MG
     Route: 048
     Dates: start: 20241009
  2. FLUCONAZOLE [Concomitant]
     Active Substance: FLUCONAZOLE
     Indication: Product used for unknown indication
     Dosage: 100MG 24/24H SINCE LESS THAN 3 MONTHS

REACTIONS (1)
  - Melanocytic naevus [Recovered/Resolved]

NARRATIVE: CASE EVENT DATE: 20241227
